FAERS Safety Report 6924648-5 (Version None)
Quarter: 2010Q3

REPORT INFORMATION
  Report Type: 
  Country: None (occurrence: None)
  Receive Date: 20100816
  Receipt Date: 20100811
  Transmission Date: 20110219
  Serious: Yes (Other)
  Sender: FDA-Public Use
  Company Number: US-ASTRAZENECA-2008UW04646

PATIENT
  Age: 50 Year
  Sex: Female
  Weight: 86.2 kg

DRUGS (20)
  1. SEROQUEL [Suspect]
     Indication: ANXIETY
     Route: 048
     Dates: start: 20030101, end: 20050101
  2. SEROQUEL [Suspect]
     Indication: DEPRESSION
     Route: 048
     Dates: start: 20030101, end: 20050101
  3. SEROQUEL [Suspect]
     Indication: SCHIZOPHRENIA
     Route: 048
     Dates: start: 20030101, end: 20050101
  4. SEROQUEL [Suspect]
     Route: 048
  5. SEROQUEL [Suspect]
     Route: 048
  6. SEROQUEL [Suspect]
     Route: 048
  7. SEROQUEL [Suspect]
     Route: 048
     Dates: start: 20070125, end: 20070312
  8. SEROQUEL [Suspect]
     Route: 048
     Dates: start: 20070125, end: 20070312
  9. SEROQUEL [Suspect]
     Route: 048
     Dates: start: 20070125, end: 20070312
  10. LEXAPRO [Concomitant]
     Dosage: 20 MG - 40 MG
     Route: 048
  11. TRAZODONE HCL [Concomitant]
     Dosage: 50 MG -100 MG
     Route: 048
     Dates: start: 20070313
  12. VYTORIN [Concomitant]
     Dosage: 10 MG/ 80 MG
     Route: 048
  13. PREVACID [Concomitant]
     Route: 048
     Dates: start: 20070313
  14. ABILIFY [Concomitant]
     Dosage: 10 MG - 15 MG
     Route: 048
     Dates: start: 20070321
  15. DIPHENHYDRAM [Concomitant]
     Route: 048
     Dates: start: 20041228
  16. LIPITOR [Concomitant]
     Dosage: 20 MG - 40 MG
     Route: 048
  17. CYCLOBENZAPRINE [Concomitant]
     Route: 048
     Dates: start: 20070313
  18. DICLOFENAC SODIUM [Concomitant]
     Route: 048
     Dates: start: 20070313
  19. LEVAQUIN [Concomitant]
     Route: 048
     Dates: start: 20070313
  20. FOSAMAX [Concomitant]
     Route: 048
     Dates: start: 20070330

REACTIONS (4)
  - DIABETES MELLITUS INADEQUATE CONTROL [None]
  - DIABETIC RETINOPATHY [None]
  - ILL-DEFINED DISORDER [None]
  - TYPE 2 DIABETES MELLITUS [None]
